FAERS Safety Report 9262729 (Version 1)
Quarter: 2013Q2

REPORT INFORMATION
  Report Type: Spontaneous
  Country: US (occurrence: None)
  Receive Date: 20130426
  Receipt Date: 20130426
  Transmission Date: 20140414
  Serious: Yes (Other)
  Sender: FDA-Public Use
  Company Number: SYM-2013-03156

PATIENT
  Age: 77 Year
  Sex: Male

DRUGS (3)
  1. 5-FU (FLUOROURACIL) [Suspect]
     Indication: ACTINIC KERATOSIS
     Route: 061
  2. LISINOPRIL (LISINOPRIL) [Suspect]
     Indication: PRODUCT USED FOR UNKNOWN INDICATION
  3. METFORMIN (METFORMIN) (1500 MILLIGRAM) (METFORMIN) [Concomitant]

REACTIONS (6)
  - Presyncope [None]
  - Angioedema [None]
  - Incorrect dose administered [None]
  - Dysphonia [None]
  - Hypersensitivity [None]
  - Cross sensitivity reaction [None]
